FAERS Safety Report 6268067-6 (Version None)
Quarter: 2009Q3

REPORT INFORMATION
  Report Type: 
  Country: None (occurrence: None)
  Receive Date: 20090713
  Receipt Date: 20090702
  Transmission Date: 20100115
  Serious: Yes (Other)
  Sender: FDA-Public Use
  Company Number: 2007SP000464

PATIENT

DRUGS (1)
  1. TEMOZOLOMIDE [Suspect]
     Indication: ANAPLASTIC ASTROCYTOMA
     Dosage: UNK
     Dates: start: 20050808, end: 20070430

REACTIONS (3)
  - ANAEMIA [None]
  - DYSPNOEA [None]
  - TRANSFUSION REACTION [None]
